FAERS Safety Report 5755842-7 (Version None)
Quarter: 2008Q2

REPORT INFORMATION
  Report Type: 
  Country: None (occurrence: None)
  Receive Date: 20080528
  Receipt Date: 20080514
  Transmission Date: 20081010
  Serious: Yes (Death)
  Sender: FDA-Public Use
  Company Number: 2007S1006261

PATIENT
  Age: 77 Year
  Sex: Female
  Weight: 56.6996 kg

DRUGS (4)
  1. CLONIDINE HCL [Suspect]
     Indication: HYPERTENSION
     Dosage: 0.1 MG;DAILY;ORAL
     Route: 048
     Dates: start: 20070522
  2. ACTOS [Concomitant]
  3. PREMARIN [Concomitant]
  4. SYNTHROID [Concomitant]

REACTIONS (4)
  - DRY MOUTH [None]
  - GLOSSODYNIA [None]
  - MYOCARDIAL INFARCTION [None]
  - PARAESTHESIA ORAL [None]
